FAERS Safety Report 17025162 (Version 1)
Quarter: 2019Q4

REPORT INFORMATION
  Report Type: Spontaneous
  Country: CA (occurrence: CA)
  Receive Date: 20191113
  Receipt Date: 20191113
  Transmission Date: 20200122
  Serious: Yes (Other)
  Sender: FDA-Public Use
  Company Number: CA-PFIZER INC-2019484509

PATIENT
  Sex: Female

DRUGS (6)
  1. METHOTREXATE SODIUM. [Suspect]
     Active Substance: METHOTREXATE SODIUM
     Indication: RHEUMATOID ARTHRITIS
     Dosage: 10 MG, UNK
     Route: 065
  2. HUMIRA [Suspect]
     Active Substance: ADALIMUMAB
     Dosage: UNK
     Route: 058
  3. XELJANZ [Concomitant]
     Active Substance: TOFACITINIB CITRATE
     Indication: RHEUMATOID ARTHRITIS
     Dosage: 5 MG, 2X/DAY
     Route: 048
  4. METHOTREXATE SODIUM. [Suspect]
     Active Substance: METHOTREXATE SODIUM
     Dosage: 20 MG, UNK
     Route: 065
  5. HYDROXYCHLOROQUINE SULFATE. [Concomitant]
     Active Substance: HYDROXYCHLOROQUINE SULFATE
     Indication: DRUG INEFFECTIVE
     Dosage: 400 MG, UNK
  6. ACTEMRA [Suspect]
     Active Substance: TOCILIZUMAB
     Indication: RASH
     Dosage: 240 MG, UNK
     Route: 065

REACTIONS (10)
  - Musculoskeletal pain [Unknown]
  - Drug hypersensitivity [Unknown]
  - Cough [Unknown]
  - Joint stiffness [Unknown]
  - Pain in extremity [Unknown]
  - Rhinorrhoea [Unknown]
  - Arthralgia [Unknown]
  - Rash [Unknown]
  - Drug ineffective [Unknown]
  - Arthropathy [Unknown]
